FAERS Safety Report 10425096 (Version 2)
Quarter: 2014Q4

REPORT INFORMATION
  Report Type: Spontaneous
  Country: US (occurrence: US)
  Receive Date: 20140902
  Receipt Date: 20141022
  Transmission Date: 20150528
  Serious: Yes (Death, Other)
  Sender: FDA-Public Use
  Company Number: US-GLAXOSMITHKLINE-A1087348A

PATIENT
  Sex: Female
  Weight: 59.4 kg

DRUGS (1)
  1. VOTRIENT [Suspect]
     Active Substance: PAZOPANIB HYDROCHLORIDE
     Indication: SOFT TISSUE SARCOMA
     Dosage: 200 MG AT 800 MG DAILY
     Route: 048
     Dates: start: 20140703

REACTIONS (2)
  - Malignant neoplasm progression [Fatal]
  - Hospice care [Fatal]
